FAERS Safety Report 10460577 (Version 2)
Quarter: 2015Q1

REPORT INFORMATION
  Report Type: Report from Study
  Country: CN (occurrence: CN)
  Receive Date: 20140918
  Receipt Date: 20150202
  Transmission Date: 20150720
  Serious: Yes (Death)
  Sender: FDA-Public Use
  Company Number: CN-ROCHE-1462350

PATIENT
  Sex: Male
  Weight: 85 kg

DRUGS (4)
  1. OXALIPLATIN. [Concomitant]
     Active Substance: OXALIPLATIN
     Indication: GASTROINTESTINAL CARCINOMA
  2. FLUOROURACIL. [Concomitant]
     Active Substance: FLUOROURACIL
     Indication: GASTROINTESTINAL CARCINOMA
  3. AVASTIN [Suspect]
     Active Substance: BEVACIZUMAB
     Indication: RECTAL CANCER
     Route: 042
     Dates: start: 20140805
  4. CALCIUM FOLINATE [Concomitant]
     Active Substance: LEUCOVORIN CALCIUM
     Indication: GASTROINTESTINAL CARCINOMA

REACTIONS (1)
  - Neoplasm [Fatal]
